FAERS Safety Report 9808266 (Version 3)
Quarter: 2014Q1

REPORT INFORMATION
  Report Type: Spontaneous
  Country: US (occurrence: US)
  Receive Date: 20140110
  Receipt Date: 20140123
  Transmission Date: 20141002
  Serious: Yes (Death)
  Sender: FDA-Public Use
  Company Number: US-JNJFOC-20140103859

PATIENT
  Age: 42 Year
  Sex: Female

DRUGS (12)
  1. FENTANYL [Suspect]
     Indication: SUICIDE ATTEMPT
     Route: 062
  2. OROS HYDROMORPHONE [Suspect]
     Indication: SUICIDE ATTEMPT
     Route: 048
  3. TAPENTADOL [Suspect]
     Indication: SUICIDE ATTEMPT
     Route: 048
  4. ACETAMINOPHEN/OXYCODONE [Suspect]
     Indication: SUICIDE ATTEMPT
     Route: 048
  5. CITALOPRAM [Suspect]
     Indication: SUICIDE ATTEMPT
     Route: 048
  6. DOXEPIN [Suspect]
     Indication: SUICIDE ATTEMPT
     Route: 048
  7. MORPHINE [Suspect]
     Indication: SUICIDE ATTEMPT
     Route: 048
  8. ANDROGENS [Suspect]
     Indication: SUICIDE ATTEMPT
     Route: 048
  9. ALPRAZOLAM [Suspect]
     Indication: SUICIDE ATTEMPT
     Route: 048
  10. CLONAZEPAM [Suspect]
     Indication: SUICIDE ATTEMPT
     Route: 048
  11. LEVOTHYROXINE [Suspect]
     Indication: SUICIDE ATTEMPT
     Route: 048
  12. MELOXICAM [Suspect]
     Indication: SUICIDE ATTEMPT
     Route: 048

REACTIONS (1)
  - Toxicity to various agents [Fatal]
